FAERS Safety Report 10687695 (Version 1)
Quarter: 2014Q4

REPORT INFORMATION
  Report Type: Spontaneous
  Country: US (occurrence: None)
  Receive Date: 20141231
  Receipt Date: 20141231
  Transmission Date: 20150529
  Serious: Yes (Hospitalization)
  Sender: FDA-Public Use
  Company Number: None

PATIENT
  Age: 23 Year
  Sex: Female
  Weight: 53.6 kg

DRUGS (2)
  1. MIDAZOLAM [Suspect]
     Active Substance: MIDAZOLAM\MIDAZOLAM HYDROCHLORIDE
     Indication: SEDATIVE THERAPY
     Dosage: 6 MG   ONCE  IV
     Route: 042
     Dates: start: 20141117, end: 20141117
  2. MEPERIDINE [Suspect]
     Active Substance: MEPERIDINE
     Indication: SEDATIVE THERAPY
     Dosage: 150 MG  ONCE  IV
     Route: 042
     Dates: start: 20141117, end: 20141117

REACTIONS (2)
  - Sinus tachycardia [None]
  - Erythema [None]

NARRATIVE: CASE EVENT DATE: 20141117
